FAERS Safety Report 4562035-8 (Version None)
Quarter: 2005Q1

REPORT INFORMATION
  Report Type: 
  Country: None (occurrence: None)
  Receive Date: 20050125
  Receipt Date: 20050125
  Transmission Date: 20050727
  Serious: Yes (Death, Hospitalization)
  Sender: FDA-Public Use
  Company Number: None

PATIENT
  Age: 65 Year
  Sex: Male
  Weight: 122.4712 kg

DRUGS (1)
  1. BEXTRA [Suspect]
     Dosage: 1 PER DAY

REACTIONS (1)
  - DEATH [None]
